FAERS Safety Report 9773702 (Version 1)
Quarter: 2013Q4

REPORT INFORMATION
  Report Type: Spontaneous
  Country: US (occurrence: US)
  Receive Date: 20131219
  Receipt Date: 20131219
  Transmission Date: 20140711
  Serious: No
  Sender: FDA-Public Use
  Company Number: US-MYLANLABS-2013S1013671

PATIENT
  Sex: Female

DRUGS (1)
  1. SOTRADECOL [Suspect]
     Indication: SCLEROTHERAPY
     Route: 042
     Dates: start: 201302, end: 201302

REACTIONS (2)
  - Skin necrosis [Not Recovered/Not Resolved]
  - Wound [Not Recovered/Not Resolved]
